FAERS Safety Report 21263039 (Version 1)
Quarter: 2022Q3

REPORT INFORMATION
  Report Type: Spontaneous
  Country: US (occurrence: None)
  Receive Date: 20220826
  Receipt Date: 20220826
  Transmission Date: 20221027
  Serious: Yes (Death)
  Sender: FDA-Public Use
  Company Number: None

PATIENT
  Sex: Female

DRUGS (6)
  1. LOKELMA [Suspect]
     Active Substance: SODIUM ZIRCONIUM CYCLOSILICATE
     Indication: Hyperkalaemia
     Dosage: 10 GRAM NON-DIALYSIS DAYS ?
     Route: 048
     Dates: start: 20210604
  2. LOKELMA [Suspect]
     Active Substance: SODIUM ZIRCONIUM CYCLOSILICATE
     Indication: Chronic kidney disease
  3. lasix 20mg tablets [Concomitant]
  4. rena-vite tablets [Concomitant]
  5. ELIQUIS [Concomitant]
     Active Substance: APIXABAN
  6. tylenol 325mg tablets [Concomitant]

REACTIONS (1)
  - Death [None]
